FAERS Safety Report 19064467 (Version 9)
Quarter: 2021Q4

REPORT INFORMATION
  Report Type: Spontaneous
  Country: GB (occurrence: GB)
  Receive Date: 20210326
  Receipt Date: 20211224
  Transmission Date: 20220303
  Serious: Yes (Death, Hospitalization, Other)
  Sender: FDA-Public Use
  Company Number: GB-009507513-2012GBR002091

PATIENT
  Age: 53 Year
  Sex: Male
  Weight: 122.8 kg

DRUGS (24)
  1. LOSARTAN POTASSIUM [Suspect]
     Active Substance: LOSARTAN POTASSIUM
     Indication: Hypertension
     Dosage: 50 MILLIGRAM, QD,TABLET
     Route: 048
     Dates: start: 20201206, end: 20210308
  2. PEMBROLIZUMAB [Suspect]
     Active Substance: PEMBROLIZUMAB
     Indication: Leiomyosarcoma
     Dosage: 200 MILLIGRAM, Q3W
     Route: 042
     Dates: start: 20201117, end: 20210304
  3. GEMCITABINE [Suspect]
     Active Substance: GEMCITABINE
     Indication: Undifferentiated sarcoma
     Dosage: DOSE: 2128 MG, FREQUENCY: D1 AND D8
     Route: 042
     Dates: start: 20201117, end: 20201210
  4. GEMCITABINE [Suspect]
     Active Substance: GEMCITABINE
     Indication: Leiomyosarcoma
     Dosage: 1710 MILLIGRAM, FREQUENCY: D1 AND D8
     Route: 042
     Dates: start: 20210304, end: 20210304
  5. GEMCITABINE [Suspect]
     Active Substance: GEMCITABINE
     Dosage: 2660 MILLIGRAM, FREQUENCY: D1 AND D8
     Route: 042
     Dates: start: 20201117, end: 20201124
  6. OXYCODONE [Suspect]
     Active Substance: OXYCODONE
     Indication: Pelvic pain
     Dosage: 400 MILLIGRAM, QD
     Route: 048
     Dates: start: 20201105
  7. BISOPROLOL [Suspect]
     Active Substance: BISOPROLOL
     Indication: Coronary artery disease
     Dosage: 7.5 MILLIGRAM, QD
     Route: 048
     Dates: start: 2017
  8. FUROSEMIDE [Suspect]
     Active Substance: FUROSEMIDE
     Indication: Coronary artery disease
     Dosage: 20 MILLIGRAM, QD
     Route: 048
     Dates: start: 20201125
  9. METOCLOPRAMIDE [Suspect]
     Active Substance: METOCLOPRAMIDE
     Indication: Nausea
     Dosage: 10 MILLIGRAM, QD
     Route: 048
     Dates: start: 20201206, end: 2021
  10. OXYCONTIN [Suspect]
     Active Substance: OXYCODONE HYDROCHLORIDE
     Indication: Pain
     Dosage: 30 MILLIGRAM, ONCE
     Route: 048
     Dates: start: 20201105
  11. OXYCONTIN [Suspect]
     Active Substance: OXYCODONE HYDROCHLORIDE
     Dosage: 40 MILLIGRAM, ONCE
     Dates: start: 20210224
  12. PEMBROLIZUMAB [Suspect]
     Active Substance: PEMBROLIZUMAB
     Indication: Undifferentiated sarcoma
     Dosage: 200 MILLIGRAM, Q3W
     Route: 042
     Dates: start: 20210708, end: 20210708
  13. ASPIRIN [Concomitant]
     Active Substance: ASPIRIN
     Indication: Prophylaxis
     Dosage: 75 MILLIGRAM, QD
     Route: 048
     Dates: start: 2017
  14. LANSOPRAZOLE [Concomitant]
     Active Substance: LANSOPRAZOLE
     Indication: Gastrooesophageal reflux disease
     Dosage: 30 MILLIGRAM, QD
     Route: 048
     Dates: start: 2017
  15. ACETAMINOPHEN [Concomitant]
     Active Substance: ACETAMINOPHEN
     Indication: Pelvic pain
     Dosage: 1 GRAM, QD/PRN
     Route: 048
     Dates: start: 2008, end: 20210728
  16. POLYETHYLENE GLYCOL 3350\POTASSIUM CHLORIDE\SODIUM BICARBONATE\SODIUM [Concomitant]
     Active Substance: POLYETHYLENE GLYCOL 3350\POTASSIUM CHLORIDE\SODIUM BICARBONATE\SODIUM CHLORIDE
     Indication: Constipation
     Dosage: DOSE: 1 SACHET, BID/PRN
     Route: 048
     Dates: start: 2008, end: 20210728
  17. ATORVASTATIN [Concomitant]
     Active Substance: ATORVASTATIN
     Indication: Coronary artery disease
     Dosage: 80 MILLIGRAM, QD
     Route: 048
     Dates: start: 2017
  18. DOCUSATE SODIUM [Concomitant]
     Active Substance: DOCUSATE SODIUM
     Indication: Constipation
     Dosage: 200 MILLIGRAM, BID
     Route: 048
     Dates: start: 2008
  19. LIDOCAINE [Concomitant]
     Active Substance: LIDOCAINE
     Indication: Pain
     Dosage: DOSE: T TOPICAL, TID
     Route: 061
     Dates: start: 20201109
  20. GABAPENTIN [Concomitant]
     Active Substance: GABAPENTIN
     Indication: Neuralgia
     Dosage: 300 MG MANE, 600 MG NOCTE
     Route: 048
     Dates: start: 20201125
  21. LANOLIN;MINERAL OIL;PETROLATUM [Concomitant]
     Indication: Rash
     Dosage: UNK, TID
     Route: 061
     Dates: start: 20201123, end: 2021
  22. CLOTRIMAZOLE [Concomitant]
     Active Substance: CLOTRIMAZOLE
     Indication: Intertrigo
     Dosage: DOSE: T, BID
     Route: 061
     Dates: start: 20201123, end: 20201127
  23. SENOKOT [Concomitant]
     Active Substance: SENNOSIDES
     Indication: Constipation
     Dosage: 7.5 MILLIGRAM (ALSO REPORTED AS 2 TABLETS), QD
     Route: 048
     Dates: start: 20200223, end: 20210308
  24. LANOLIN\LIGHT MINERAL OIL\PARAFFIN [Concomitant]
     Active Substance: LANOLIN\LIGHT MINERAL OIL\PARAFFIN
     Indication: Rash
     Dosage: DOSE: T TOPICAL, TID
     Route: 061
     Dates: start: 20201123, end: 2021

REACTIONS (13)
  - Cellulitis [Fatal]
  - Death [Fatal]
  - Fall [Fatal]
  - Skin infection [Fatal]
  - Dyspnoea [Fatal]
  - Cardiac failure [Fatal]
  - Blood bilirubin increased [Fatal]
  - Pneumonia [Fatal]
  - Accident [Fatal]
  - Urinary retention [Fatal]
  - Urinary tract infection [Fatal]
  - Constipation [Fatal]
  - Dizziness [Fatal]

NARRATIVE: CASE EVENT DATE: 20201128
